FAERS Safety Report 5363196-3 (Version None)
Quarter: 2007Q2

REPORT INFORMATION
  Report Type: 
  Country: None (occurrence: None)
  Receive Date: 20070618
  Receipt Date: 20070618
  Transmission Date: 20071010
  Serious: Yes (Hospitalization)
  Sender: FDA-Public Use
  Company Number: None

PATIENT
  Sex: Male
  Weight: 66 kg

DRUGS (2)
  1. FLUNAZENIL [Suspect]
     Indication: ILL-DEFINED DISORDER
     Dosage: 0.2 MG ONCE (N)
  2. DIAZEPAM [Concomitant]

REACTIONS (1)
  - GRAND MAL CONVULSION [None]
